FAERS Safety Report 15785783 (Version 1)
Quarter: 2019Q1

REPORT INFORMATION
  Report Type: Spontaneous
  Country: KR (occurrence: KR)
  Receive Date: 20190103
  Receipt Date: 20190103
  Transmission Date: 20190417
  Serious: Yes (Other)
  Sender: FDA-Public Use
  Company Number: KR-SA-2018SA319104

PATIENT
  Age: 63 Year
  Sex: Male

DRUGS (6)
  1. MICARDIS PLUS [Concomitant]
     Active Substance: HYDROCHLOROTHIAZIDE\TELMISARTAN
     Indication: HYPERTENSION
     Dosage: 40/12.5 MG/QD 1/T
     Route: 048
  2. LIVALO [Concomitant]
     Active Substance: PITAVASTATIN CALCIUM
     Dosage: 4 MG, UNK
  3. SOLIQUA 100/33 [Suspect]
     Active Substance: INSULIN GLARGINE\LIXISENATIDE
     Indication: DIABETES MELLITUS
     Dosage: 40 U, QD
     Route: 058
     Dates: start: 201809
  4. NEUROPACID [Concomitant]
     Dosage: 600 MG, UNK
     Route: 065
  5. FENOBATE [Concomitant]
     Indication: ARTERIOSCLEROSIS
     Dosage: 200 MG, QD
     Route: 048
  6. VESSEL DUE-F [Concomitant]
     Dosage: 1 DF, BID
     Route: 065

REACTIONS (3)
  - Hyperglycaemia [Recovered/Resolved]
  - Tongue cancer recurrent [Not Recovered/Not Resolved]
  - Off label use [Unknown]

NARRATIVE: CASE EVENT DATE: 201809
